FAERS Safety Report 22949525 (Version 3)
Quarter: 2023Q4

REPORT INFORMATION
  Report Type: Report from Study
  Country: CA (occurrence: None)
  Receive Date: 20230915
  Receipt Date: 20231117
  Transmission Date: 20240109
  Serious: Yes (Hospitalization)
  Sender: FDA-Public Use
  Company Number: 2023A209807

PATIENT
  Sex: Female

DRUGS (2)
  1. TEZSPIRE [Suspect]
     Active Substance: TEZEPELUMAB-EKKO
     Indication: Asthma
     Dosage: 210.0MG UNKNOWN
     Route: 058
     Dates: start: 20230106
  2. TEZSPIRE [Suspect]
     Active Substance: TEZEPELUMAB-EKKO
     Indication: Asthma
     Dosage: 210.0MG UNKNOWN
     Route: 058
     Dates: start: 20230816

REACTIONS (6)
  - Chest pain [Unknown]
  - Chronic obstructive pulmonary disease [Unknown]
  - Hypertension [Recovering/Resolving]
  - Asthma [Unknown]
  - Dyspnoea [Unknown]
  - Drug ineffective [Unknown]
